FAERS Safety Report 8499794-8 (Version None)
Quarter: 2012Q3

REPORT INFORMATION
  Report Type: 
  Country: None (occurrence: None)
  Receive Date: 20120710
  Receipt Date: 20120629
  Transmission Date: 20120928
  Serious: Yes (Hospitalization)
  Sender: FDA-Public Use
  Company Number: FR-NOVOPROD-355060

PATIENT
  Age: 75 Year
  Sex: Male
  Weight: 73 kg

DRUGS (9)
  1. ALDACTONE [Concomitant]
     Dosage: 25 MG, QD
  2. COLCHIMAX                          /00728901/ [Concomitant]
     Dosage: 0.5 MG, BID
  3. INSULIN [Concomitant]
  4. LOPRIL                             /00498401/ [Concomitant]
     Dosage: 25 MG, BID
  5. BISOPROLOL FUMARATE [Concomitant]
     Dosage: 1.25 MG, BID
  6. LASIX [Concomitant]
  7. ATORVASTATIN [Concomitant]
     Dosage: 20 MG, QD
  8. REPAGLINIDE [Suspect]
     Indication: PRODUCT USED FOR UNKNOWN INDICATION
     Route: 065
     Dates: start: 20120501, end: 20120523
  9. ALLOPURINOL [Concomitant]
     Dosage: 100 MG, QD

REACTIONS (2)
  - HEPATOCELLULAR INJURY [None]
  - COAGULATION FACTOR V LEVEL DECREASED [None]
